FAERS Safety Report 4727298-4 (Version None)
Quarter: 2005Q3

REPORT INFORMATION
  Report Type: 
  Country: None (occurrence: None)
  Receive Date: 20050726
  Receipt Date: 20041004
  Transmission Date: 20060218
  Serious: Yes (Hospitalization)
  Sender: FDA-Public Use
  Company Number: 04SFA0258 301

PATIENT
  Sex: Male

DRUGS (7)
  1. ASPIRIN (ACETYSALICYLIC ACID) [Concomitant]
  2. ATENOLOL [Concomitant]
  3. DOXYCYCLINE [Concomitant]
  4. ENOXAPARIN SODIUM [Concomitant]
  5. HEPARIN [Concomitant]
  6. RAMIPRIL [Concomitant]
  7. AGGRASTAT [Suspect]
     Indication: CORONARY ARTERY DISEASE
     Dosage: PATIENT WAS IN PLACEBO GROUP
     Dates: start: 20000521, end: 20000523

REACTIONS (1)
  - EPIGASTRIC DISCOMFORT [None]
